FAERS Safety Report 5030603-5 (Version None)
Quarter: 2006Q2

REPORT INFORMATION
  Report Type: 
  Country: None (occurrence: None)
  Receive Date: 20060615
  Receipt Date: 20060602
  Transmission Date: 20061013
  Serious: Yes (Hospitalization, Other)
  Sender: FDA-Public Use
  Company Number: 2006057745

PATIENT
  Age: 46 Year
  Sex: Female
  Weight: 78.4723 kg

DRUGS (5)
  1. BEXTRA [Suspect]
     Indication: BACK PAIN
     Dosage: 10 MG (10 MG 1 IN 1 D)
     Dates: start: 20040101, end: 20040101
  2. SYNTHROID [Concomitant]
  3. ZANTAC [Concomitant]
  4. MONTELEUKAST SODIUM (MONTELEUKAST SODIUM) [Concomitant]
  5. ANTIHYPERTENSIVES (ANTIHYPERTENSIVES) [Concomitant]

REACTIONS (5)
  - ATELECTASIS [None]
  - CARDIAC FAILURE CONGESTIVE [None]
  - CORONARY ARTERY DISEASE [None]
  - MYOCARDIAL INFARCTION [None]
  - PULMONARY OEDEMA [None]
